FAERS Safety Report 16885456 (Version 1)
Quarter: 2019Q4

REPORT INFORMATION
  Report Type: Spontaneous
  Country: US (occurrence: US)
  Receive Date: 20191004
  Receipt Date: 20191004
  Transmission Date: 20200122
  Serious: Yes (Hospitalization, Other)
  Sender: FDA-Public Use
  Company Number: US-AMGEN-USASP2019156651

PATIENT
  Sex: Female

DRUGS (5)
  1. NEUPOGEN [Suspect]
     Active Substance: FILGRASTIM
     Indication: PRODUCT USED FOR UNKNOWN INDICATION
     Dosage: UNK
     Route: 065
  2. UTOMILUMAB [Concomitant]
     Active Substance: UTOMILUMAB
     Indication: OVARIAN CANCER RECURRENT
     Dosage: UNK
  3. CYCLOPHOSPHAMIDE. [Concomitant]
     Active Substance: CYCLOPHOSPHAMIDE
     Indication: OVARIAN CANCER RECURRENT
     Dosage: UNK
  4. ENOXAPARIN [Concomitant]
     Active Substance: ENOXAPARIN
     Dosage: 40 MILLIGRAM, QD
     Route: 058
     Dates: start: 20190828
  5. LOMOTIL [Concomitant]
     Active Substance: ATROPINE SULFATE\DIPHENOXYLATE HYDROCHLORIDE
     Indication: DIARRHOEA
     Dosage: UNK UNK, AS NECESSARY (2.5-0.025 MG TABLET 4 TIMES DAILY AS NEEDED/1 -2 TABLETS AFTER EACH DIARRHEA
     Route: 048

REACTIONS (11)
  - Ovarian cancer metastatic [Not Recovered/Not Resolved]
  - Neuropathy peripheral [Unknown]
  - Depression [Unknown]
  - Dizziness [Recovered/Resolved]
  - Malignant ascites [Recovered/Resolved]
  - Anxiety [Unknown]
  - Arthralgia [Unknown]
  - Dehydration [Recovered/Resolved]
  - Ileus [Recovered/Resolved]
  - Drug hypersensitivity [Unknown]
  - Anaemia [Recovered/Resolved]

NARRATIVE: CASE EVENT DATE: 20190827
